FAERS Safety Report 9120691 (Version 1)
Quarter: 2013Q1

REPORT INFORMATION
  Report Type: Spontaneous
  Country: US (occurrence: US)
  Receive Date: 20130226
  Receipt Date: 20130226
  Transmission Date: 20140127
  Serious: Yes (Death, Hospitalization)
  Sender: FDA-Public Use
  Company Number: US-009507513-1302USA010856

PATIENT
  Age: 70 Year
  Sex: Male

DRUGS (7)
  1. EMEND [Suspect]
     Indication: NAUSEA
     Dosage: ONE PILL ON DAY OF CHEMOTHERAPY AND THEN 1 PILL ON DAY 2 AND 1 PILL ON DAY 3
     Route: 048
     Dates: start: 20130117
  2. EMEND [Suspect]
     Indication: VOMITING
  3. LEVOTHYROXINE SODIUM [Concomitant]
  4. LISINOPRIL [Concomitant]
  5. HERCEPTIN [Concomitant]
  6. PRAVACHOL [Concomitant]
  7. CISPLATIN [Suspect]

REACTIONS (1)
  - Death [Fatal]
